FAERS Safety Report 20508718 (Version 1)
Quarter: 2022Q1

REPORT INFORMATION
  Report Type: Spontaneous
  Country: US (occurrence: US)
  Receive Date: 20220223
  Receipt Date: 20220223
  Transmission Date: 20220423
  Serious: No
  Sender: FDA-Public Use
  Company Number: US-JNJFOC-20220213429

PATIENT

DRUGS (1)
  1. AMIVANTAMAB [Suspect]
     Active Substance: AMIVANTAMAB
     Indication: Non-small cell lung cancer
     Route: 041

REACTIONS (6)
  - Arthralgia [Unknown]
  - Paraesthesia [Unknown]
  - Nausea [Unknown]
  - Myalgia [Unknown]
  - Exfoliative rash [Unknown]
  - Constipation [Recovering/Resolving]
